FAERS Safety Report 10424394 (Version 2)
Quarter: 2016Q1

REPORT INFORMATION
  Report Type: Spontaneous
  Country: US (occurrence: US)
  Receive Date: 20140902
  Receipt Date: 20160111
  Transmission Date: 20160525
  Serious: Yes (Death, Other)
  Sender: FDA-Public Use
  Company Number: US-009507513-1408USA017124

PATIENT
  Sex: Male
  Weight: 61.18 kg

DRUGS (1)
  1. JANUVIA [Suspect]
     Active Substance: SITAGLIPTIN PHOSPHATE
     Dosage: 100 MG, QD
     Route: 048
     Dates: start: 2006, end: 20120816

REACTIONS (25)
  - Cholecystectomy [Unknown]
  - Hypertension [Unknown]
  - Malignant melanoma [Unknown]
  - Appendix disorder [Unknown]
  - Neuropathy peripheral [Unknown]
  - Hypercholesterolaemia [Unknown]
  - Bladder trabeculation [Unknown]
  - Back pain [Unknown]
  - Malignant melanoma in situ [Unknown]
  - Colon cancer [Unknown]
  - Adverse drug reaction [Unknown]
  - Pancreatic carcinoma metastatic [Unknown]
  - Metastases to liver [Unknown]
  - Hepatic cyst [Unknown]
  - Nodule [Unknown]
  - Atelectasis [Unknown]
  - Helicobacter infection [Unknown]
  - Osteosclerosis [Unknown]
  - Renal cyst [Unknown]
  - Alopecia [Unknown]
  - Large intestine polyp [Unknown]
  - Osteitis deformans [Unknown]
  - Death [Fatal]
  - Metastases to peritoneum [Unknown]
  - Gastritis erosive [Unknown]

NARRATIVE: CASE EVENT DATE: 2009
